FAERS Safety Report 20909581 (Version 1)
Quarter: 2022Q2

REPORT INFORMATION
  Report Type: Spontaneous
  Country: US (occurrence: US)
  Receive Date: 20220603
  Receipt Date: 20220603
  Transmission Date: 20220721
  Serious: Yes (Other)
  Sender: FDA-Public Use
  Company Number: US-Hikma Pharmaceuticals USA Inc.-US-H14001-22-01355

PATIENT
  Age: 92 Year
  Sex: Male

DRUGS (9)
  1. AZACITIDINE [Suspect]
     Active Substance: AZACITIDINE
     Indication: Acute myeloid leukaemia
     Route: 042
  2. AZACITIDINE [Suspect]
     Active Substance: AZACITIDINE
     Route: 042
  3. AZACITIDINE [Suspect]
     Active Substance: AZACITIDINE
     Route: 042
  4. AZACITIDINE [Suspect]
     Active Substance: AZACITIDINE
     Route: 042
  5. AZACITIDINE [Suspect]
     Active Substance: AZACITIDINE
     Route: 042
  6. VENETOCLAX [Suspect]
     Active Substance: VENETOCLAX
     Indication: Acute myeloid leukaemia
     Route: 065
  7. VENETOCLAX [Suspect]
     Active Substance: VENETOCLAX
     Route: 065
  8. VENETOCLAX [Suspect]
     Active Substance: VENETOCLAX
     Route: 065
  9. MICAFUNGIN [Concomitant]
     Active Substance: MICAFUNGIN
     Indication: Antifungal prophylaxis
     Dosage: UNKNOWN
     Route: 065

REACTIONS (7)
  - Weight decreased [Unknown]
  - Physical deconditioning [Unknown]
  - Fatigue [Unknown]
  - Nausea [Unknown]
  - Cytopenia [Unknown]
  - Febrile neutropenia [Unknown]
  - COVID-19 pneumonia [Unknown]
